FAERS Safety Report 24371867 (Version 2)
Quarter: 2024Q4

REPORT INFORMATION
  Report Type: Spontaneous
  Country: US (occurrence: US)
  Receive Date: 20240927
  Receipt Date: 20241004
  Transmission Date: 20250115
  Serious: Yes (Other)
  Sender: Haleon PLC
  Company Number: US-HALEON-2198655

PATIENT
  Age: 35 Year
  Sex: Male

DRUGS (2)
  1. ACETAMINOPHEN [Suspect]
     Active Substance: ACETAMINOPHEN
     Indication: Headache
     Route: 048
  2. LORATADINE [Concomitant]
     Active Substance: LORATADINE
     Indication: Seasonal allergy

REACTIONS (12)
  - Acute hepatic failure [Unknown]
  - Abdominal pain upper [Unknown]
  - Nausea [Unknown]
  - Fatigue [Unknown]
  - Drug-induced liver injury [Unknown]
  - Sleep disorder [Unknown]
  - Stupor [Unknown]
  - Impulsive behaviour [Unknown]
  - Coma [Unknown]
  - Hepatic encephalopathy [Unknown]
  - Renal injury [Unknown]
  - Metabolic acidosis [Unknown]
